FAERS Safety Report 6010703-3 (Version None)
Quarter: 2008Q4

REPORT INFORMATION
  Report Type: 
  Country: None (occurrence: None)
  Receive Date: 20081216
  Receipt Date: 20081209
  Transmission Date: 20090506
  Serious: Yes (Other)
  Sender: FDA-Public Use
  Company Number: 014049

PATIENT
  Sex: Female

DRUGS (2)
  1. PRIALT [Suspect]
     Indication: DRUG USE FOR UNKNOWN INDICATION
     Dosage: 1 UG, SINGLE, INTRATHECAL; 0.016 UG, ONCE/HOUR, INTRATHECAL
     Route: 037
     Dates: start: 20080612, end: 20080612
  2. PRIALT [Suspect]
     Indication: DRUG USE FOR UNKNOWN INDICATION
     Dosage: 1 UG, SINGLE, INTRATHECAL; 0.016 UG, ONCE/HOUR, INTRATHECAL
     Route: 037
     Dates: start: 20081027, end: 20081106

REACTIONS (3)
  - DERMATITIS ALLERGIC [None]
  - HYPERSENSITIVITY [None]
  - SERUM SICKNESS [None]
